FAERS Safety Report 21199307 (Version 1)
Quarter: 2022Q3

REPORT INFORMATION
  Report Type: Spontaneous
  Country: TR (occurrence: TR)
  Receive Date: 20220811
  Receipt Date: 20220811
  Transmission Date: 20221026
  Serious: Yes (Life-Threatening, Hospitalization, Other)
  Sender: FDA-Public Use
  Company Number: TR-MACLEODS PHARMACEUTICALS US LTD-MAC2022036736

PATIENT

DRUGS (1)
  1. LIDOCAINE [Suspect]
     Active Substance: LIDOCAINE
     Indication: Product used for unknown indication
     Dosage: 200 MILLIGRAM, INJECTION (MATERNAL DOSE)
     Route: 064

REACTIONS (2)
  - Methaemoglobinaemia [Recovered/Resolved]
  - Foetal exposure during pregnancy [Unknown]
